FAERS Safety Report 4476475-9 (Version None)
Quarter: 2004Q4

REPORT INFORMATION
  Report Type: 
  Country: None (occurrence: None)
  Receive Date: 20041012
  Receipt Date: 20041004
  Transmission Date: 20050328
  Serious: Yes (Hospitalization)
  Sender: FDA-Public Use
  Company Number: US-JNJFOC-20041001368

PATIENT
  Sex: Female

DRUGS (3)
  1. NIZORAL A-D [Suspect]
     Indication: DANDRUFF
     Dosage: ORAL
     Route: 048
     Dates: start: 20040801
  2. BLOOD PRESSURE MEDICATION (ANTIHYPERTENSIVES) [Concomitant]
  3. HIGH CHOLESTEROL MEDICATION (CHOLESTEROL- AND TRIGLYCERIDE REDUCERS) [Concomitant]

REACTIONS (6)
  - ACCIDENTAL EXPOSURE [None]
  - BLOOD TEST ABNORMAL [None]
  - DIFFICULTY IN WALKING [None]
  - FATIGUE [None]
  - HYPERSENSITIVITY [None]
  - SWOLLEN TONGUE [None]
